FAERS Safety Report 11096806 (Version 1)
Quarter: 2015Q2

REPORT INFORMATION
  Report Type: Spontaneous
  Country: BR (occurrence: BR)
  Receive Date: 20150507
  Receipt Date: 20150507
  Transmission Date: 20150821
  Serious: Yes (Hospitalization, Other)
  Sender: FDA-Public Use
  Company Number: PHHY2015BR053197

PATIENT
  Age: 22 Year
  Sex: Male

DRUGS (4)
  1. MYFORTIC [Suspect]
     Active Substance: MYCOPHENOLATE SODIUM
     Indication: RENAL TRANSPLANT
     Dosage: 1440 MG, UNK
     Route: 065
  2. SIMULECT [Suspect]
     Active Substance: BASILIXIMAB
     Indication: RENAL TRANSPLANT
     Route: 065
  3. PREDNISONE. [Concomitant]
     Active Substance: PREDNISONE
     Indication: RENAL TRANSPLANT
     Dosage: 1 MG/KG, UNK
     Route: 065
  4. TACROLIMUS. [Suspect]
     Active Substance: TACROLIMUS
     Indication: RENAL TRANSPLANT
     Dosage: 0.12 MG/KG, UNK
     Route: 065

REACTIONS (7)
  - Urinary tract infection [Recovering/Resolving]
  - Neurotoxicity [Recovering/Resolving]
  - Nephrosclerosis [Recovering/Resolving]
  - Nephropathy toxic [Recovering/Resolving]
  - Renal tubular atrophy [Recovering/Resolving]
  - Immunosuppressant drug level decreased [Recovering/Resolving]
  - Urinary fistula [Recovering/Resolving]
